FAERS Safety Report 20763332 (Version 2)
Quarter: 2022Q3

REPORT INFORMATION
  Report Type: Spontaneous
  Country: US (occurrence: US)
  Receive Date: 20220428
  Receipt Date: 20220815
  Transmission Date: 20221026
  Serious: No
  Sender: FDA-Public Use
  Company Number: US-PFIZER INC-202200521094

PATIENT
  Age: 65 Year
  Sex: Female

DRUGS (1)
  1. IBRANCE [Suspect]
     Active Substance: PALBOCICLIB
     Indication: Breast cancer female
     Dosage: 75 MG, CYCLIC (TAKE 1 TABLET BY MOUTH ONCE DAILY WITH FOOD FOR 21 DAYS FOLLOWED BY 14 DAYS OFF)
     Route: 048
     Dates: start: 20210602

REACTIONS (3)
  - White blood cell count decreased [Unknown]
  - Nausea [Not Recovered/Not Resolved]
  - Fatigue [Unknown]
